FAERS Safety Report 19027319 (Version 1)
Quarter: 2021Q1

REPORT INFORMATION
  Report Type: Spontaneous
  Country: BR (occurrence: BR)
  Receive Date: 20210318
  Receipt Date: 20210318
  Transmission Date: 20210420
  Serious: Yes (Other)
  Sender: FDA-Public Use
  Company Number: BR-PFIZER INC-2021268994

PATIENT
  Age: 66 Year
  Sex: Male

DRUGS (1)
  1. SUTENT [Suspect]
     Active Substance: SUNITINIB MALATE
     Indication: RENAL CANCER METASTATIC
     Dosage: TWO?WEEK USE WITH A ONE?WEEK BREAK
     Dates: start: 20210125, end: 20210207

REACTIONS (5)
  - Ascites [Unknown]
  - Feeling abnormal [Unknown]
  - Neoplasm progression [Unknown]
  - Pain [Unknown]
  - Nausea [Unknown]
